FAERS Safety Report 20148371 (Version 1)
Quarter: 2021Q4

REPORT INFORMATION
  Report Type: Report from Study
  Country: HN (occurrence: HN)
  Receive Date: 20211204
  Receipt Date: 20211204
  Transmission Date: 20220304
  Serious: Yes (Other)
  Sender: FDA-Public Use
  Company Number: HN-NOVARTISPH-NVSC2021HN273852

PATIENT
  Age: 66 Year
  Sex: Female

DRUGS (1)
  1. EXFORGE [Suspect]
     Active Substance: AMLODIPINE BESYLATE\VALSARTAN
     Indication: Product used for unknown indication
     Dosage: 1 DOSAGE FORM (STARTED SINCE 2 YEARS)
     Route: 065

REACTIONS (2)
  - Memory impairment [Unknown]
  - Mental disorder [Unknown]
